FAERS Safety Report 5045407-7 (Version None)
Quarter: 2006Q3

REPORT INFORMATION
  Report Type: 
  Country: None (occurrence: None)
  Receive Date: 20060707
  Receipt Date: 20060626
  Transmission Date: 20061208
  Serious: Yes (Other)
  Sender: FDA-Public Use
  Company Number: US-MERCK-0606USA04656

PATIENT
  Sex: Male

DRUGS (2)
  1. HYZAAR [Suspect]
     Route: 048
  2. TOPROL-XL [Concomitant]
     Route: 065

REACTIONS (1)
  - CARDIAC DISORDER [None]
